FAERS Safety Report 8431198-6 (Version None)
Quarter: 2012Q2

REPORT INFORMATION
  Report Type: 
  Country: None (occurrence: None)
  Receive Date: 20120612
  Receipt Date: 20120608
  Transmission Date: 20120825
  Serious: Yes (Hospitalization)
  Sender: FDA-Public Use
  Company Number: PHHY2012GB049240

PATIENT
  Age: 71 Year
  Sex: Male

DRUGS (7)
  1. METFORMIN HCL [Concomitant]
     Dosage: 850 MG, TID
     Dates: start: 20110728
  2. SIMVASTATIN [Suspect]
     Indication: HYPERCHOLESTEROLAEMIA
     Dosage: 80 MG, QD
     Route: 048
     Dates: start: 20120101, end: 20120502
  3. PERINDOPRIL ERBUMINE [Concomitant]
     Dosage: 4 MG, QD
     Route: 048
     Dates: start: 20111014
  4. ASPIRIN [Concomitant]
     Dosage: 75 MG, QD
     Route: 048
     Dates: start: 20111209
  5. CARVEDILOL [Concomitant]
     Dosage: 12.5 MG, BID
     Route: 048
     Dates: start: 20111014
  6. CYANOCOBALAMIN [Concomitant]
     Dosage: 50 MG, BID
     Route: 048
     Dates: start: 20110201
  7. GLIMEPIRIDE [Concomitant]
     Dosage: 2 MG, QD
     Route: 048
     Dates: start: 20100728

REACTIONS (4)
  - HYPERKALAEMIA [None]
  - ANURIA [None]
  - BLOOD CREATININE INCREASED [None]
  - RHABDOMYOLYSIS [None]
